FAERS Safety Report 17402039 (Version 4)
Quarter: 2020Q2

REPORT INFORMATION
  Report Type: Report from Study
  Country: FR (occurrence: FR)
  Receive Date: 20200211
  Receipt Date: 20200624
  Transmission Date: 20200713
  Serious: Yes (Hospitalization)
  Sender: FDA-Public Use
  Company Number: FR-ROCHE-2513229

PATIENT
  Age: 78 Year
  Sex: Male

DRUGS (10)
  1. TAMSULOSINE [TAMSULOSIN] [Concomitant]
     Active Substance: TAMSULOSIN
  2. TELMISARTAN. [Concomitant]
     Active Substance: TELMISARTAN
  3. VINORELBINE [Suspect]
     Active Substance: VINORELBINE TARTRATE
     Indication: NON-SMALL CELL LUNG CANCER
     Dosage: CYCLE 09 DAY 03
     Route: 048
     Dates: start: 20190702, end: 20200111
  4. ATEZOLIZUMAB. [Suspect]
     Active Substance: ATEZOLIZUMAB
     Indication: NON-SMALL CELL LUNG CANCER
     Dosage: CYCLE 09
     Route: 042
     Dates: start: 20190702, end: 20200203
  5. TINZAPARINE SODIQUE [Concomitant]
     Active Substance: TINZAPARIN SODIUM
  6. MACROGOL [Concomitant]
     Active Substance: POLYETHYLENE GLYCOLS
  7. LERCANIDIPINE [Concomitant]
     Active Substance: LERCANIDIPINE
  8. PANTOPRAZOLE [Concomitant]
     Active Substance: PANTOPRAZOLE
  9. PARACETAMOL [Concomitant]
     Active Substance: ACETAMINOPHEN
  10. MORPHINE SULFATE. [Concomitant]
     Active Substance: MORPHINE SULFATE

REACTIONS (2)
  - Cholangitis acute [Recovered/Resolved]
  - Immune-mediated cholangitis [Not Recovered/Not Resolved]

NARRATIVE: CASE EVENT DATE: 20191220
